FAERS Safety Report 25366136 (Version 1)
Quarter: 2025Q2

REPORT INFORMATION
  Report Type: Spontaneous
  Country: US (occurrence: US)
  Receive Date: 20250528
  Receipt Date: 20250528
  Transmission Date: 20250717
  Serious: No
  Sender: CELLTRION
  Company Number: US-CELLTRION INC.-2025US007022

PATIENT

DRUGS (1)
  1. ADALIMUMAB [Suspect]
     Active Substance: ADALIMUMAB
     Indication: Crohn^s disease
     Dosage: (ADALIMUMAB 80 MG AUTO-INJECTER) 80 MG INJECT SQ ONCE EVERY TWO WEEKS
     Route: 058
     Dates: start: 202412

REACTIONS (4)
  - Needle issue [Recovered/Resolved]
  - Product quality issue [Recovered/Resolved]
  - Exposure via skin contact [Recovered/Resolved]
  - Accidental exposure to product [Recovered/Resolved]

NARRATIVE: CASE EVENT DATE: 20250218
